FAERS Safety Report 24066772 (Version 1)
Quarter: 2024Q3

REPORT INFORMATION
  Report Type: Spontaneous
  Country: FR (occurrence: FR)
  Receive Date: 20240709
  Receipt Date: 20240709
  Transmission Date: 20241017
  Serious: Yes (Other)
  Sender: MYLAN
  Company Number: None

PATIENT
  Age: 61 Year
  Sex: Female

DRUGS (5)
  1. VANCOMYCIN [Suspect]
     Active Substance: VANCOMYCIN
     Indication: Encephalitis
     Dosage: 3 GRAM, QD
     Route: 042
     Dates: start: 20240222, end: 20240228
  2. VANCOMYCIN [Suspect]
     Active Substance: VANCOMYCIN
     Dosage: 4 GRAM, QD
     Route: 042
     Dates: start: 20240229, end: 20240229
  3. VANCOMYCIN [Suspect]
     Active Substance: VANCOMYCIN
     Dosage: 3.5 GRAM, QD
     Route: 042
     Dates: start: 20240301, end: 20240306
  4. CEFTRIAXONE [Suspect]
     Active Substance: CEFTRIAXONE\CEFTRIAXONE SODIUM
     Indication: Encephalitis
     Dosage: 6 GRAM, QD
     Route: 042
     Dates: start: 20240223, end: 20240225
  5. CEFTRIAXONE [Suspect]
     Active Substance: CEFTRIAXONE\CEFTRIAXONE SODIUM
     Dosage: 3 GRAM, QD
     Route: 042
     Dates: start: 20240226, end: 20240306

REACTIONS (2)
  - Cholestasis [Recovering/Resolving]
  - Hepatic cytolysis [Recovering/Resolving]

NARRATIVE: CASE EVENT DATE: 20240226
